FAERS Safety Report 4710592-0 (Version None)
Quarter: 2005Q3

REPORT INFORMATION
  Report Type: 
  Country: None (occurrence: None)
  Receive Date: 20050707
  Receipt Date: 20050621
  Transmission Date: 20060218
  Serious: Yes (Other)
  Sender: FDA-Public Use
  Company Number: EWC050644611

PATIENT
  Age: 57 Year
  Sex: Female
  Weight: 59 kg

DRUGS (8)
  1. FORSTEO (TERIPARATIDE) [Suspect]
     Indication: OSTEOPOROSIS
     Dates: start: 20040601
  2. IDEOS [Concomitant]
  3. THYROHORMONE (LEVOTHYROXINE SODIUM) [Concomitant]
  4. INSULIN /00030501/ [Concomitant]
  5. LEXOTANIL (BROMAZEPAM) [Concomitant]
  6. MODURETIC 5-50 [Concomitant]
  7. ADALAT (NIFEDIPINE PA) [Concomitant]
  8. DIHYDROERGOTAMINE MESYLATE [Concomitant]

REACTIONS (2)
  - CEREBRAL HAEMORRHAGE [None]
  - CEREBROVASCULAR ACCIDENT [None]
